FAERS Safety Report 12731716 (Version 1)
Quarter: 2016Q3

REPORT INFORMATION
  Report Type: Spontaneous
  Country: US (occurrence: US)
  Receive Date: 20160909
  Receipt Date: 20160909
  Transmission Date: 20161109
  Serious: Yes (Disabling, Other)
  Sender: FDA-Public Use
  Company Number: None

PATIENT
  Age: 88 Year
  Sex: Male
  Weight: 64.41 kg

DRUGS (6)
  1. THINGS WITH BETA BLOCKERS [Concomitant]
  2. LUPRON + CASIDEX [Concomitant]
  3. ASPIRIN. [Concomitant]
     Active Substance: ASPIRIN
  4. ORTHOMOLIDE [Concomitant]
  5. EQUATE LOPERAMIDE HYDROCHLORIDE [Suspect]
     Active Substance: LOPERAMIDE HYDROCHLORIDE
     Indication: DIARRHOEA
     Dosage: 1-1/2 TEASPOONFULL ONCE BEDTIME MOUTH
     Route: 048
     Dates: start: 20160721, end: 20160721
  6. LUMIGAN [Concomitant]
     Active Substance: BIMATOPROST

REACTIONS (5)
  - Mydriasis [None]
  - Visual impairment [None]
  - Impaired driving ability [None]
  - Pupillary light reflex tests abnormal [None]
  - Product label issue [None]

NARRATIVE: CASE EVENT DATE: 20160721
